FAERS Safety Report 8790533 (Version 1)
Quarter: 2012Q4

REPORT INFORMATION
  Report Type: Spontaneous
  Country: US (occurrence: None)
  Receive Date: 20120912
  Receipt Date: 20120912
  Transmission Date: 20130627
  Serious: Yes (Disabling)
  Sender: FDA-Public Use
  Company Number: None

PATIENT
  Age: 59 Year
  Sex: Male
  Weight: 73.48 kg

DRUGS (1)
  1. THALLIUM [Suspect]
     Route: 042

REACTIONS (3)
  - Headache [None]
  - Eye pain [None]
  - Blindness unilateral [None]
